FAERS Safety Report 11893765 (Version 3)
Quarter: 2018Q1

REPORT INFORMATION
  Report Type: Spontaneous
  Country: GR (occurrence: GR)
  Receive Date: 20160106
  Receipt Date: 20180224
  Transmission Date: 20180508
  Serious: Yes (Death, Other)
  Sender: FDA-Public Use
  Company Number: GR-009507513-1601GRC000025

PATIENT
  Age: 4 Year
  Sex: Female
  Weight: 20 kg

DRUGS (6)
  1. ACETAMINOPHEN. [Concomitant]
     Active Substance: ACETAMINOPHEN
     Dosage: UNK
     Dates: start: 20151228
  2. BRIDION [Suspect]
     Active Substance: SUGAMMADEX
     Indication: NEUROMUSCULAR BLOCKADE REVERSAL
     Dosage: APPROXIMATELY 45 MG, ONCE
     Dates: start: 20151228
  3. SEVOFLURANE. [Concomitant]
     Active Substance: SEVOFLURANE
     Dosage: UNK
     Dates: start: 20151228
  4. ESMERON [Suspect]
     Active Substance: ROCURONIUM BROMIDE
     Dosage: 12 MG, ONCE
     Dates: start: 20151228
  5. PROPOFOL. [Concomitant]
     Active Substance: PROPOFOL
     Dosage: UNK
     Dates: start: 20151228
  6. ONDANSETRON [Concomitant]
     Active Substance: ONDANSETRON
     Dosage: UNK
     Dates: start: 20151228

REACTIONS (9)
  - Postoperative respiratory distress [Fatal]
  - Cardiac arrest [Fatal]
  - Bradycardia [Fatal]
  - Cardiomyopathy [Fatal]
  - Bronchospasm [Fatal]
  - Blood pressure decreased [Fatal]
  - Pulmonary oedema [Fatal]
  - Circulatory collapse [Fatal]
  - Hypoxia [Fatal]

NARRATIVE: CASE EVENT DATE: 20151228
